FAERS Safety Report 7363884-3 (Version None)
Quarter: 2011Q1

REPORT INFORMATION
  Report Type: 
  Country: None (occurrence: None)
  Receive Date: 20110321
  Receipt Date: 20110224
  Transmission Date: 20110831
  Serious: No
  Sender: FDA-Public Use
  Company Number: US-B.I. PHARMACEUTICALS,INC./RIDGEFIELD-2011-BP-06960BP

PATIENT
  Age: 83 Year
  Sex: Male

DRUGS (2)
  1. FLOMAX [Suspect]
     Dosage: 0.4 MG
     Dates: start: 20090101, end: 20110201
  2. DIOVAN (GENERIC) [Concomitant]

REACTIONS (6)
  - WEIGHT DECREASED [None]
  - BACK PAIN [None]
  - DECREASED APPETITE [None]
  - MUSCULAR WEAKNESS [None]
  - CYSTITIS [None]
  - INSOMNIA [None]
